FAERS Safety Report 8006505-9 (Version None)
Quarter: 2011Q4

REPORT INFORMATION
  Report Type: 
  Country: None (occurrence: None)
  Receive Date: 20111226
  Receipt Date: 20111216
  Transmission Date: 20120403
  Serious: Yes (Hospitalization, Other)
  Sender: FDA-Public Use
  Company Number: PHHY2011DE70160

PATIENT
  Sex: Male
  Weight: 63 kg

DRUGS (8)
  1. ZOMETA [Suspect]
     Indication: METASTASES TO BONE
     Dosage: 4 MG/5 ML
     Route: 042
     Dates: start: 20110530
  2. TRAMADOL HCL [Concomitant]
     Dosage: 400 MG, DAILY
     Route: 048
  3. CALCIUM [Concomitant]
     Dosage: 600 MG, DAILY
     Route: 048
  4. NOVALGIN [Concomitant]
     Dosage: 4000 MG, DAILY
  5. METOCLOPRAMIDE [Concomitant]
     Dosage: 40 MG, DAILY
     Route: 048
     Dates: start: 20110101
  6. PREDNISOLONE [Concomitant]
     Dosage: 5 MG/2X2TBL/DAY
     Route: 048
     Dates: start: 20110912
  7. ZYTIGA [Concomitant]
     Dosage: 250 MGX14TAB PER DAY
     Route: 048
     Dates: start: 20110912
  8. VITAMIN D [Concomitant]
     Route: 048

REACTIONS (11)
  - ANAEMIA [None]
  - GENERAL PHYSICAL HEALTH DETERIORATION [None]
  - ASTHENIA [None]
  - BONE PAIN [None]
  - GASTRIC ULCER [None]
  - SKIN HAEMORRHAGE [None]
  - PANCYTOPENIA [None]
  - THROMBOCYTOPENIA [None]
  - URINARY TRACT INFECTION [None]
  - WEIGHT DECREASED [None]
  - DECREASED APPETITE [None]
